FAERS Safety Report 6618591-9 (Version None)
Quarter: 2010Q1

REPORT INFORMATION
  Report Type: 
  Country: None (occurrence: None)
  Receive Date: 20100305
  Receipt Date: 20100305
  Transmission Date: 20100710
  Serious: No
  Sender: FDA-Public Use
  Company Number: None

PATIENT

DRUGS (1)
  1. SOLU-CORTEF (PRESERVATIVE FREE) 100MG PLAIN VIAL PFIZER [Suspect]
     Dosage: N/A N/A N/A

REACTIONS (2)
  - DRUG LABEL CONFUSION [None]
  - MEDICATION ERROR [None]
